FAERS Safety Report 25940659 (Version 1)
Quarter: 2025Q4

REPORT INFORMATION
  Report Type: Spontaneous
  Country: US (occurrence: None)
  Receive Date: 20251017
  Receipt Date: 20251017
  Transmission Date: 20260118
  Serious: Yes (Other)
  Sender: FDA-CTU
  Company Number: None

PATIENT
  Age: 71 Year
  Sex: Female

DRUGS (1)
  1. DROXIDOPA [Suspect]
     Active Substance: DROXIDOPA
     Dosage: 100MG TID

REACTIONS (6)
  - Disorientation [None]
  - Movement disorder [None]
  - Dizziness [None]
  - Gait disturbance [None]
  - Headache [None]
  - Diarrhoea [None]
